FAERS Safety Report 20552303 (Version 1)
Quarter: 2022Q1

REPORT INFORMATION
  Report Type: Report from Study
  Country: CA (occurrence: CA)
  Receive Date: 20220304
  Receipt Date: 20220304
  Transmission Date: 20220423
  Serious: Yes (Hospitalization, Other)
  Sender: FDA-Public Use
  Company Number: CA-NOVARTISPH-NVSC2022CA050853

PATIENT
  Age: 72 Year
  Sex: Female

DRUGS (8)
  1. SANDOSTATIN [Suspect]
     Active Substance: OCTREOTIDE ACETATE
     Indication: Carcinoid tumour
     Dosage: 30 MG, Q4W
     Route: 030
     Dates: start: 20180329
  2. SANDOSTATIN [Suspect]
     Active Substance: OCTREOTIDE ACETATE
  3. SANDOSTATIN [Suspect]
     Active Substance: OCTREOTIDE ACETATE
  4. MELOXICAM [Concomitant]
     Active Substance: MELOXICAM
     Indication: Muscle spasms
     Dosage: 2 DOSAGE FORM
     Route: 065
     Dates: start: 2018
  5. MORPHINE [Concomitant]
     Active Substance: MORPHINE
     Indication: Muscle spasms
     Dosage: 1 TO 2 TABLETS, PRN
     Route: 065
     Dates: start: 2018
  6. ELIQUIS [Concomitant]
     Active Substance: APIXABAN
     Indication: Product used for unknown indication
     Dosage: UNK
     Route: 065
     Dates: start: 20210709
  7. ONDANSETRON [Concomitant]
     Active Substance: ONDANSETRON
     Indication: Muscle spasms
     Dosage: UNK
     Route: 065
     Dates: start: 2018
  8. VALSARTAN [Concomitant]
     Active Substance: VALSARTAN
     Indication: Hypertension
     Dosage: UNK
     Route: 048

REACTIONS (2)
  - Pelvic fracture [Unknown]
  - Fall [Unknown]

NARRATIVE: CASE EVENT DATE: 20220219
